FAERS Safety Report 9846143 (Version 1)
Quarter: 2013Q4

REPORT INFORMATION
  Report Type: Spontaneous
  Country: US (occurrence: None)
  Receive Date: 20131223
  Receipt Date: 20131223
  Transmission Date: 20140711
  Serious: Yes (Hospitalization)
  Sender: FDA-Public Use
  Company Number: CABO-13003713

PATIENT
  Age: 81 Year
  Sex: Male

DRUGS (7)
  1. COMETRIQ [Suspect]
     Indication: THYROID CANCER
     Route: 048
     Dates: start: 20131003
  2. LOVENOX(ENOXAPARIN SODIUM) [Concomitant]
  3. LEVOTHYROXINE(LEVOTHYROXINE SODIUM) [Concomitant]
  4. MINOCYCLINE(MINOCYLCINE HYDROCHLORIDE) [Concomitant]
  5. MULTIVITAMIN (VITAMIN NOSE) [Concomitant]
  6. PENTASA(MESALAZINE) [Concomitant]
  7. BUDESONIDE(BUDESONIDE) [Concomitant]

REACTIONS (1)
  - Perforated ulcer [None]
